FAERS Safety Report 4363711-2 (Version None)
Quarter: 2004Q2

REPORT INFORMATION
  Report Type: 
  Country: None (occurrence: None)
  Receive Date: 20040524
  Receipt Date: 20040512
  Transmission Date: 20050107
  Serious: Yes (Other)
  Sender: FDA-Public Use
  Company Number: IT-ROCHE-367472

PATIENT
  Age: 35 Year
  Sex: Male

DRUGS (3)
  1. RIBAVIRIN [Suspect]
     Route: 065
  2. INTERFERON ALFA-2B [Suspect]
     Route: 065
  3. INTERFERON ALFA-2B [Suspect]
     Route: 065

REACTIONS (2)
  - COELIAC DISEASE [None]
  - ILEUS PARALYTIC [None]
